FAERS Safety Report 4344470-6 (Version None)
Quarter: 2004Q2

REPORT INFORMATION
  Report Type: 
  Country: None (occurrence: None)
  Receive Date: 20040419
  Receipt Date: 20040317
  Transmission Date: 20050107
  Serious: Yes (Death, Hospitalization, Disabling)
  Sender: FDA-Public Use
  Company Number: A-CH2004-05406

PATIENT
  Age: 78 Year
  Sex: Female
  Weight: 63 kg

DRUGS (4)
  1. TRACLEER [Suspect]
     Indication: PULMONARY HYPERTENSION
     Dosage: SEE IMAGE
     Route: 048
     Dates: start: 20031031, end: 20031112
  2. TRACLEER [Suspect]
     Indication: PULMONARY HYPERTENSION
     Dosage: SEE IMAGE
     Route: 048
     Dates: start: 20031113, end: 20040201
  3. ELTROXIN (LEVOTHYROXINE SODIUM) [Concomitant]
  4. OXYGEN (OXYGEN) [Concomitant]

REACTIONS (5)
  - COLITIS ISCHAEMIC [None]
  - CONDITION AGGRAVATED [None]
  - PULMONARY HYPERTENSION [None]
  - RENAL HAEMORRHAGE [None]
  - RIGHT VENTRICULAR FAILURE [None]
